FAERS Safety Report 18585710 (Version 1)
Quarter: 2020Q4

REPORT INFORMATION
  Report Type: Spontaneous
  Country: US (occurrence: US)
  Receive Date: 20201205
  Receipt Date: 20201205
  Transmission Date: 20210114
  Serious: No
  Sender: FDA-Public Use
  Company Number: None

PATIENT
  Age: 23 Year
  Sex: Female
  Weight: 62.1 kg

DRUGS (1)
  1. ELURYNG [Suspect]
     Active Substance: ETHINYL ESTRADIOL\ETONOGESTREL
     Indication: MENSTRUAL DISORDER
     Dosage: ?          QUANTITY:1 RING;?
     Route: 067
     Dates: start: 20201203

REACTIONS (5)
  - Migraine [None]
  - Feeling abnormal [None]
  - Muscle spasms [None]
  - Vaginal haemorrhage [None]
  - Product substitution issue [None]

NARRATIVE: CASE EVENT DATE: 20201205
